FAERS Safety Report 25159088 (Version 1)
Quarter: 2025Q2

REPORT INFORMATION
  Report Type: Spontaneous
  Country: CA (occurrence: CA)
  Receive Date: 20250404
  Receipt Date: 20250404
  Transmission Date: 20250717
  Serious: Yes (Other)
  Sender: ACCORD
  Company Number: None

PATIENT
  Age: 48 Year
  Sex: Female

DRUGS (2)
  1. METHOTREXATE SODIUM [Suspect]
     Active Substance: METHOTREXATE SODIUM
     Indication: Immunoglobulin G4 related disease
  2. PREDNISONE [Concomitant]
     Active Substance: PREDNISONE

REACTIONS (10)
  - Immunoglobulins increased [Recovering/Resolving]
  - Gingival hypertrophy [Recovering/Resolving]
  - Off label use [Recovering/Resolving]
  - Intraductal papillary mucinous neoplasm [Recovering/Resolving]
  - Drug ineffective for unapproved indication [Recovering/Resolving]
  - Hypotension [Recovering/Resolving]
  - Inflammation [Recovering/Resolving]
  - Cyst [Recovering/Resolving]
  - Gingival swelling [Recovering/Resolving]
  - Laryngeal stenosis [Recovering/Resolving]
